FAERS Safety Report 7592669-8 (Version None)
Quarter: 2011Q2

REPORT INFORMATION
  Report Type: 
  Country: None (occurrence: None)
  Receive Date: 20110628
  Receipt Date: 20110616
  Transmission Date: 20111010
  Serious: Yes (Death)
  Sender: FDA-Public Use
  Company Number: 1000021778

PATIENT
  Age: 80 Year
  Sex: Male
  Weight: 100 kg

DRUGS (2)
  1. MULTIPLE MEDICATIONS (NOS) [Concomitant]
  2. ROFLUMILAST (ROFLUMILAST) (TABLETS) [Suspect]
     Indication: CHRONIC OBSTRUCTIVE PULMONARY DISEASE
     Dosage: 500 MCG (500 MG, 1 IN 1 D), ORAL
     Route: 048
     Dates: start: 20110228

REACTIONS (9)
  - HYPERTENSION [None]
  - SPINAL FRACTURE [None]
  - PAIN [None]
  - CARDIAC FAILURE [None]
  - FRACTURE [None]
  - PELVIC PAIN [None]
  - OSTEOPOROSIS [None]
  - RESPIRATORY FAILURE [None]
  - ARRHYTHMIA [None]
